FAERS Safety Report 4560939-3 (Version None)
Quarter: 2005Q1

REPORT INFORMATION
  Report Type: 
  Country: None (occurrence: None)
  Receive Date: 20050126
  Receipt Date: 20040212
  Transmission Date: 20050727
  Serious: No
  Sender: FDA-Public Use
  Company Number: US-BRISTOL-MYERS SQUIBB COMPANY-12504247

PATIENT

DRUGS (1)
  1. METFORMIN HCL [Suspect]
     Dates: start: 20030701

REACTIONS (2)
  - ANAEMIA [None]
  - THROMBOCYTOPENIA [None]
